FAERS Safety Report 22670506 (Version 7)
Quarter: 2023Q4

REPORT INFORMATION
  Report Type: Report from Study
  Country: ZA (occurrence: ZA)
  Receive Date: 20230705
  Receipt Date: 20231017
  Transmission Date: 20240109
  Serious: Yes (Hospitalization, Other)
  Sender: FDA-Public Use
  Company Number: ZA-CELLTRION INC.-2022ZA013146

PATIENT

DRUGS (13)
  1. INFLIXIMAB [Suspect]
     Active Substance: INFLIXIMAB
     Indication: Colitis ulcerative
     Dosage: 550 MILLIGRAM INTRAVENOUS INFUSIONS AT 8 WEEKLY INFUSIONS
     Route: 042
     Dates: start: 20220601, end: 20220727
  2. INFLIXIMAB [Suspect]
     Active Substance: INFLIXIMAB
     Dosage: 550 MG AT 0 WEEKS; 2 WEEKS; 6 WEEKS AND 8 WEEKLY INFUSIONS
     Route: 042
     Dates: start: 20220222
  3. INFLIXIMAB [Suspect]
     Active Substance: INFLIXIMAB
     Dosage: 550 MG AT 0 WEEKS; 2 WEEKS; 6 WEEKS AND 8 WEEKLY INFUSIONS
     Route: 042
     Dates: start: 20220405
  4. INFLIXIMAB [Suspect]
     Active Substance: INFLIXIMAB
     Dosage: 550 MG AT 0 WEEKS; 2 WEEKS; 6 WEEKS AND 8 WEEKLY INFUSIONS
     Route: 042
     Dates: start: 20220803
  5. INFLIXIMAB [Suspect]
     Active Substance: INFLIXIMAB
     Dosage: 550 MG AT 4 WEEKLY INTERVALS.
     Route: 042
     Dates: start: 20220803
  6. INFLIXIMAB [Suspect]
     Active Substance: INFLIXIMAB
     Dosage: 550 MG, 4 WEEKLY INTERVALS
     Route: 042
     Dates: start: 20220922, end: 20230825
  7. INFLIXIMAB [Suspect]
     Active Substance: INFLIXIMAB
     Dosage: UNK
     Dates: start: 20230628
  8. METHOTREXATE [Concomitant]
     Active Substance: METHOTREXATE
     Indication: Colitis ulcerative
     Dosage: 25 MG WEEKLY
     Route: 058
  9. BUDESONIDE [Concomitant]
     Active Substance: BUDESONIDE
     Indication: Colitis ulcerative
     Dosage: 9 MILLIGRAM PER DAY
     Route: 048
  10. PENTASA [Concomitant]
     Active Substance: MESALAMINE
     Dosage: UNK
  11. METHOTREXATE SODIUM [Concomitant]
     Active Substance: METHOTREXATE SODIUM
  12. FOLIC ACID [Concomitant]
     Active Substance: FOLIC ACID
  13. ASACOL [Concomitant]
     Active Substance: MESALAMINE

REACTIONS (10)
  - Colitis ulcerative [Recovering/Resolving]
  - Hospitalisation [Unknown]
  - Clostridium difficile infection [Recovering/Resolving]
  - Upper respiratory tract infection [Recovered/Resolved]
  - Drug specific antibody absent [Not Recovered/Not Resolved]
  - Therapy non-responder [Not Recovered/Not Resolved]
  - Overdose [Unknown]
  - Intentional dose omission [Unknown]
  - Intentional product use issue [Unknown]
  - Drug effect less than expected [Unknown]

NARRATIVE: CASE EVENT DATE: 20220520
